FAERS Safety Report 5803815-8 (Version None)
Quarter: 2008Q3

REPORT INFORMATION
  Report Type: 
  Country: None (occurrence: None)
  Receive Date: 20080708
  Receipt Date: 20080703
  Transmission Date: 20090109
  Serious: Yes (Hospitalization)
  Sender: FDA-Public Use
  Company Number: US-BOEHRINGER INGELHEIM GMBH, GERMANY-2008-BP-10306RO

PATIENT
  Age: 58 Year
  Sex: Female

DRUGS (7)
  1. LITHIUM CARBONATE [Suspect]
     Indication: SCHIZOAFFECTIVE DISORDER
     Dates: start: 19880101
  2. RISPERIDONE [Suspect]
  3. SODIUM CHLORIDE [Concomitant]
     Indication: HYPERCALCAEMIA
  4. SODIUM CHLORIDE [Concomitant]
     Indication: HYPERPARATHYROIDISM
  5. FUROSEMIDE [Concomitant]
     Indication: HYPERCALCAEMIA
     Route: 042
  6. FUROSEMIDE [Concomitant]
     Indication: HYPERPARATHYROIDISM
  7. ZIPRASIDONE HCL [Concomitant]
     Indication: PSYCHOTIC BEHAVIOUR

REACTIONS (2)
  - HYPERCALCAEMIA [None]
  - HYPERPARATHYROIDISM [None]
